FAERS Safety Report 8350812 (Version 2)
Quarter: 2013Q3

REPORT INFORMATION
  Report Type: Spontaneous
  Country: US (occurrence: US)
  Receive Date: 20120124
  Receipt Date: 20130705
  Transmission Date: 20140515
  Serious: Yes (Hospitalization)
  Sender: FDA-Public Use
  Company Number: US-BAYER-2012-006590

PATIENT
  Age: 39 Year
  Sex: Female
  Weight: 99 kg

DRUGS (17)
  1. YASMIN [Suspect]
     Indication: CONTRACEPTION
     Dosage: UNK
     Dates: start: 2004, end: 200806
  2. YASMIN [Suspect]
     Indication: PREMENSTRUAL SYNDROME
  3. YASMIN [Suspect]
     Indication: PREMENSTRUAL DYSPHORIC DISORDER
  4. YAZ [Suspect]
     Indication: CONTRACEPTION
     Dosage: UNK
     Dates: start: 2004, end: 200806
  5. YAZ [Suspect]
     Indication: PREMENSTRUAL SYNDROME
  6. YAZ [Suspect]
     Indication: PREMENSTRUAL DYSPHORIC DISORDER
  7. VITAMIN B12 [Concomitant]
     Indication: SUPPLEMENTATION THERAPY
     Dosage: UNK UNK, QD
     Dates: start: 2007
  8. MULTIVITAMINS [Concomitant]
     Indication: SUPPLEMENTATION THERAPY
     Dosage: UNK UNK, QD
     Dates: start: 2007
  9. SYNTHROID [Concomitant]
     Indication: HYPOTHYROIDISM
     Dosage: 100 MG, QD
     Dates: start: 1996
  10. ZYRTEC [Concomitant]
     Indication: MULTIPLE ALLERGIES
     Dosage: 10 MG, PRN
  11. PREVACID [Concomitant]
     Indication: GASTROOESOPHAGEAL REFLUX DISEASE
     Dosage: 30 MG, PRN
     Dates: start: 1996
  12. ADVAIR [Concomitant]
     Indication: ASTHMA
     Dosage: UNK UNK, PRN
     Dates: start: 2006
  13. PREDNISONE [Concomitant]
     Indication: RHINITIS ALLERGIC
     Dosage: 5 MG, 5ID
  14. PREDNISONE [Concomitant]
     Indication: COUGH
  15. PROMETHAZINE W/CODEINE [Concomitant]
     Indication: COUGH
     Dosage: UNK UNK, HS
  16. LEXAPRO [Concomitant]
     Dosage: 10 MG, QD
  17. ALLERGY SHOT [Concomitant]
     Dosage: UNK UNK, OW

REACTIONS (8)
  - Gallbladder disorder [None]
  - Injury [None]
  - Abdominal pain [None]
  - Procedural pain [None]
  - Cholecystitis chronic [None]
  - Psychological trauma [None]
  - Emotional distress [None]
  - Anxiety [None]
